FAERS Safety Report 8112413-5 (Version None)
Quarter: 2011Q4

REPORT INFORMATION
  Report Type: 
  Country: None (occurrence: None)
  Receive Date: 20111223
  Receipt Date: 20110131
  Transmission Date: 20120403
  Serious: No
  Sender: FDA-Public Use
  Company Number: PHHY2011US08623

PATIENT
  Sex: Female

DRUGS (1)
  1. RITALIN-SR [Suspect]
     Dosage: 10 MG, PER DAY
     Dates: start: 20110130

REACTIONS (2)
  - PARAESTHESIA [None]
  - FATIGUE [None]
